FAERS Safety Report 20162013 (Version 1)
Quarter: 2021Q4

REPORT INFORMATION
  Report Type: Spontaneous
  Country: FR (occurrence: FR)
  Receive Date: 20211208
  Receipt Date: 20211208
  Transmission Date: 20220303
  Serious: Yes (Death)
  Sender: FDA-Public Use
  Company Number: None

PATIENT
  Age: 5 Year
  Sex: Female
  Weight: 22 kg

DRUGS (5)
  1. REVATIO [Suspect]
     Active Substance: SILDENAFIL CITRATE
     Indication: Pulmonary arterial hypertension
     Dosage: 60 MG, 1X/DAY
     Route: 048
     Dates: start: 202109, end: 20211030
  2. ILOPROST [Suspect]
     Active Substance: ILOPROST
     Indication: Peripheral ischaemia
     Dosage: 9.9 UG, 1X/DAY
     Route: 041
     Dates: start: 20211030, end: 20211101
  3. LOVENOX [Suspect]
     Active Substance: ENOXAPARIN SODIUM
     Indication: Thrombosis prophylaxis
     Dosage: 0.2 ML, 1X/DAY
     Route: 058
     Dates: start: 20211030, end: 20211101
  4. NITRIC OXIDE [Suspect]
     Active Substance: NITRIC OXIDE
     Indication: Pulmonary arterial hypertension
     Dosage: 5 PPM
     Route: 055
     Dates: start: 20211031, end: 20211031
  5. ASPIRIN DL-LYSINE [Suspect]
     Active Substance: ASPIRIN DL-LYSINE
     Indication: Antiinflammatory therapy
     Dosage: 500 MG, 1X/DAY
     Route: 041
     Dates: start: 20211030, end: 20211101

REACTIONS (1)
  - Pulmonary alveolar haemorrhage [Fatal]

NARRATIVE: CASE EVENT DATE: 20211101
